FAERS Safety Report 23166833 (Version 1)
Quarter: 2023Q4

REPORT INFORMATION
  Report Type: Other
  Country: NL (occurrence: NL)
  Receive Date: 20231109
  Receipt Date: 20231109
  Transmission Date: 20240109
  Serious: Yes (Death, Hospitalization, Other)
  Sender: FDA-Public Use
  Company Number: None

PATIENT

DRUGS (1)
  1. ROSUVASTATIN CALCIUM [Suspect]
     Active Substance: ROSUVASTATIN CALCIUM
     Indication: Disease risk factor
     Dosage: 40 MILLIGRAM, QD (1 X PER DAG 1 STUK)
     Route: 065
     Dates: start: 20221001, end: 20230911

REACTIONS (2)
  - Rhabdomyolysis [Fatal]
  - Respiratory failure [Fatal]
